FAERS Safety Report 16475528 (Version 1)
Quarter: 2019Q2

REPORT INFORMATION
  Report Type: Spontaneous
  Country: JP (occurrence: JP)
  Receive Date: 20190625
  Receipt Date: 20190625
  Transmission Date: 20190711
  Serious: Yes (Hospitalization, Other)
  Sender: FDA-Public Use
  Company Number: JP-009507513-1904JPN002878J

PATIENT
  Age: 64 Year
  Sex: Female
  Weight: 44 kg

DRUGS (4)
  1. ALIMTA [Suspect]
     Active Substance: PEMETREXED DISODIUM
     Indication: NON-SMALL CELL LUNG CANCER
     Dosage: 690 MILLIGRAM
     Route: 041
     Dates: start: 20190215, end: 20190329
  2. KEYTRUDA [Suspect]
     Active Substance: PEMBROLIZUMAB
     Indication: NON-SMALL CELL LUNG CANCER
     Dosage: 200 MILLIGRAM, Q3W
     Route: 041
     Dates: start: 20190215, end: 20190329
  3. CARBOPLATIN. [Concomitant]
     Active Substance: CARBOPLATIN
     Indication: NON-SMALL CELL LUNG CANCER
     Dosage: 350 MILLIGRAM
     Route: 041
     Dates: start: 20190215, end: 20190329
  4. PANVITAN [Concomitant]
     Indication: PROPHYLAXIS
     Dosage: 1 GRAM, QD
     Route: 048
     Dates: start: 20190130, end: 20190427

REACTIONS (2)
  - Interstitial lung disease [Recovering/Resolving]
  - Sjogren^s syndrome [Unknown]

NARRATIVE: CASE EVENT DATE: 20190417
